FAERS Safety Report 14402288 (Version 1)
Quarter: 2018Q1

REPORT INFORMATION
  Report Type: Spontaneous
  Country: IT (occurrence: IT)
  Receive Date: 20180117
  Receipt Date: 20180117
  Transmission Date: 20180509
  Serious: Yes (Hospitalization)
  Sender: FDA-Public Use
  Company Number: IT-MYLANLABS-2015M1041960

PATIENT
  Age: 55 Year
  Sex: Female
  Weight: 80 kg

DRUGS (7)
  1. DIPRIVAN [Interacting]
     Active Substance: PROPOFOL
     Indication: GENERAL ANAESTHESIA
     Dosage: 400 MG, PRN
     Route: 042
     Dates: start: 20151012, end: 20151012
  2. DIPRIVAN [Interacting]
     Active Substance: PROPOFOL
     Indication: INDUCTION AND MAINTENANCE OF ANAESTHESIA
     Dosage: 10 MG/ML, UNK
  3. UGUROL [Suspect]
     Active Substance: TRANEXAMIC ACID
     Indication: PRODUCT USED FOR UNKNOWN INDICATION
     Dosage: 1 G, TOTAL
     Dates: start: 20151012, end: 20151012
  4. CISATRACURIUM MYLAN [Suspect]
     Active Substance: CISATRACURIUM
     Indication: GENERAL ANAESTHESIA
     Dosage: 25 MG, PRN
     Route: 042
     Dates: start: 20151012, end: 20151012
  5. FENTANEST                          /00174601/ [Interacting]
     Active Substance: FENTANYL CITRATE
     Indication: INDUCTION OF ANAESTHESIA
     Dosage: 250 ?G, TOTAL
     Dates: start: 20151012, end: 20151012
  6. CEFAMEZIN                          /00288502/ [Interacting]
     Active Substance: CEFAZOLIN
     Indication: ANTIBIOTIC PROPHYLAXIS
     Dosage: 2 G, TOTAL
     Dates: start: 20151012, end: 20151012
  7. DIPRIVAN [Interacting]
     Active Substance: PROPOFOL
     Dosage: 20 MG/ML, UNK

REACTIONS (3)
  - Drug interaction [Unknown]
  - Blood pressure decreased [Recovered/Resolved]
  - Vasodilatation [Recovered/Resolved]

NARRATIVE: CASE EVENT DATE: 20151012
